FAERS Safety Report 19893075 (Version 1)
Quarter: 2021Q3

REPORT INFORMATION
  Report Type: Spontaneous
  Country: US (occurrence: US)
  Receive Date: 20210928
  Receipt Date: 20210928
  Transmission Date: 20211014
  Serious: No
  Sender: FDA-Public Use
  Company Number: US-SA-2021SA316703

PATIENT
  Sex: Female

DRUGS (1)
  1. AUBAGIO [Suspect]
     Active Substance: TERIFLUNOMIDE
     Indication: MULTIPLE SCLEROSIS
     Dosage: 14 MG, QD
     Route: 048
     Dates: start: 20210604, end: 2021

REACTIONS (7)
  - Chills [Unknown]
  - Night sweats [Unknown]
  - Adverse drug reaction [Unknown]
  - Mouth ulceration [Unknown]
  - Pyrexia [Unknown]
  - Vaginal ulceration [Unknown]
  - Migraine [Unknown]

NARRATIVE: CASE EVENT DATE: 2021
